FAERS Safety Report 12978328 (Version 1)
Quarter: 2016Q4

REPORT INFORMATION
  Report Type: Spontaneous
  Country: US (occurrence: US)
  Receive Date: 20161128
  Receipt Date: 20161128
  Transmission Date: 20170207
  Serious: No
  Sender: FDA-Public Use
  Company Number: US-PFIZER INC-2016545278

PATIENT
  Age: 25 Year
  Sex: Male
  Weight: 92.99 kg

DRUGS (1)
  1. CHANTIX [Suspect]
     Active Substance: VARENICLINE TARTRATE
     Indication: SMOKING CESSATION THERAPY
     Dosage: 2 DF (TWO TABLETS), DAILY
     Dates: end: 201611

REACTIONS (5)
  - Anxiety [Not Recovered/Not Resolved]
  - Insomnia [Unknown]
  - Depression [Not Recovered/Not Resolved]
  - Panic attack [Unknown]
  - Head discomfort [Unknown]

NARRATIVE: CASE EVENT DATE: 201611
